FAERS Safety Report 8102668 (Version 7)
Quarter: 2015Q4

REPORT INFORMATION
  Report Type: Spontaneous
  Country: US (occurrence: US)
  Receive Date: 20110823
  Receipt Date: 20151026
  Transmission Date: 20160305
  Serious: Yes (Hospitalization, Disabling, Other)
  Sender: FDA-Public Use
  Company Number: US-ASTRAZENECA-2011SE38719

PATIENT
  Age: 70 Year
  Sex: Female
  Weight: 59.9 kg

DRUGS (11)
  1. LISINOPRIL. [Suspect]
     Active Substance: LISINOPRIL
     Indication: BLOOD PRESSURE ABNORMAL
     Route: 048
  2. PLAVIX [Concomitant]
     Active Substance: CLOPIDOGREL BISULFATE
     Indication: STENT PLACEMENT
     Route: 048
  3. LIPITOR [Concomitant]
     Active Substance: ATORVASTATIN CALCIUM
     Dosage: UNKNOWN
     Route: 065
  4. HYDROCODONE/TYLENOL [Concomitant]
     Indication: PAIN
     Dosage: 7.5/325, 1 TABLBLET EVERY 6 HOURS, AS REQUIRED
     Route: 048
     Dates: start: 2009
  5. XANAX [Concomitant]
     Active Substance: ALPRAZOLAM
     Indication: NERVOUS SYSTEM DISORDER
     Dosage: 1 MG, 1 TABLET 3 TIMES A DAY, AS REQUIRED
     Route: 048
  6. CRESTOR [Suspect]
     Active Substance: ROSUVASTATIN CALCIUM
     Indication: BLOOD CHOLESTEROL INCREASED
     Route: 048
     Dates: start: 2009
  7. METFORMIN HYDROCHLORIDE. [Concomitant]
     Active Substance: METFORMIN HYDROCHLORIDE
     Indication: DIABETES MELLITUS
     Route: 048
  8. GLIMEPIRIDE. [Concomitant]
     Active Substance: GLIMEPIRIDE
     Indication: BLOOD GLUCOSE ABNORMAL
     Route: 048
  9. LEVOTHYROXINE. [Concomitant]
     Active Substance: LEVOTHYROXINE
     Indication: THYROID DISORDER
     Route: 048
  10. LISINOPRIL HCTZ [Suspect]
     Active Substance: HYDROCHLOROTHIAZIDE\LISINOPRIL
     Indication: CARDIAC DISORDER
     Dosage: 20+ 12.5 MG DAILY
     Route: 048
  11. GLIMEPIRIDE. [Concomitant]
     Active Substance: GLIMEPIRIDE
     Indication: DIABETES MELLITUS
     Route: 048

REACTIONS (38)
  - Haematemesis [Unknown]
  - Limb injury [Unknown]
  - Feeling abnormal [Unknown]
  - Impaired driving ability [Unknown]
  - Diabetes mellitus [Unknown]
  - Cardiac failure [Unknown]
  - Osteomyelitis [Unknown]
  - Gastrointestinal ulcer [Unknown]
  - Bladder prolapse [Unknown]
  - Cerebral disorder [Unknown]
  - Back pain [Not Recovered/Not Resolved]
  - Back disorder [Unknown]
  - Headache [Recovered/Resolved]
  - Neuropathy peripheral [Unknown]
  - Eye pain [Unknown]
  - Paranasal sinus discomfort [Unknown]
  - Rotator cuff syndrome [Not Recovered/Not Resolved]
  - Sluggishness [Recovered/Resolved]
  - Loss of consciousness [Unknown]
  - Musculoskeletal discomfort [Unknown]
  - Drug dose omission [Unknown]
  - Coronary artery occlusion [Unknown]
  - Fall [Unknown]
  - Diabetes mellitus [Unknown]
  - Electroencephalogram abnormal [Unknown]
  - Blepharospasm [Not Recovered/Not Resolved]
  - Onychomadesis [Recovered/Resolved]
  - Foreign body sensation in eyes [Unknown]
  - Pain [Unknown]
  - Heart rate decreased [Unknown]
  - Cardiac disorder [Unknown]
  - Monoplegia [Unknown]
  - Peripheral swelling [Unknown]
  - Malaise [Recovered/Resolved]
  - Head injury [Unknown]
  - Laceration [Unknown]
  - Asthenia [Recovered/Resolved]
  - Thyroid disorder [Unknown]

NARRATIVE: CASE EVENT DATE: 2011
